FAERS Safety Report 4338622-9 (Version None)
Quarter: 2004Q2

REPORT INFORMATION
  Report Type: 
  Country: None (occurrence: None)
  Receive Date: 20040409
  Receipt Date: 20040317
  Transmission Date: 20050107
  Serious: Yes (Hospitalization)
  Sender: FDA-Public Use
  Company Number: 7743

PATIENT
  Age: 36 Year
  Sex: Male

DRUGS (11)
  1. FLUOROURACIL [Suspect]
     Indication: COLORECTAL CANCER
     Dosage: 1810 UNK FREQ UNK IV
     Route: 042
     Dates: start: 20040303, end: 20040303
  2. LEUCOVORIN CALCIUM [Suspect]
     Indication: COLORECTAL CANCER
     Dosage: 260 UNK FREQ UNK IV
     Route: 042
     Dates: start: 20040302, end: 20040302
  3. OXALIPLATIN [Suspect]
     Indication: COLORECTAL CANCER
     Dosage: 154 MG FREQ UNK IV
     Route: 042
     Dates: start: 20040301, end: 20040301
  4. CLONIDINE [Concomitant]
  5. LOVENOX [Concomitant]
  6. EPOGEN [Concomitant]
  7. PHENERGAN [Concomitant]
  8. ZOFRAN [Concomitant]
  9. ATIVAN [Concomitant]
  10. OXY-IR [Concomitant]
  11. MEGACE [Concomitant]

REACTIONS (11)
  - ABDOMINAL PAIN [None]
  - ANURIA [None]
  - APHAGIA [None]
  - BLOOD CREATININE INCREASED [None]
  - BLOOD SODIUM DECREASED [None]
  - BLOOD UREA INCREASED [None]
  - CONSTIPATION [None]
  - DEHYDRATION [None]
  - NAUSEA [None]
  - PALPITATIONS [None]
  - VOMITING [None]
